FAERS Safety Report 25440421 (Version 1)
Quarter: 2025Q2

REPORT INFORMATION
  Report Type: Report from Study
  Country: BR (occurrence: BR)
  Receive Date: 20250616
  Receipt Date: 20250616
  Transmission Date: 20250717
  Serious: Yes (Hospitalization, Other)
  Sender: AMGEN
  Company Number: BR-AMGEN-BRASL2024206285

PATIENT
  Age: 59 Year
  Sex: Male

DRUGS (9)
  1. VECTIBIX [Suspect]
     Active Substance: PANITUMUMAB
     Indication: Colorectal cancer metastatic
     Route: 040
     Dates: start: 20240619
  2. VECTIBIX [Suspect]
     Active Substance: PANITUMUMAB
     Route: 040
  3. GLIFAGE [Concomitant]
     Active Substance: METFORMIN HYDROCHLORIDE
     Indication: Diabetes mellitus
  4. LOSARTAN [Concomitant]
     Active Substance: LOSARTAN
     Dosage: 50 MILLIGRAM, QD (1 TABLET IN THE MORNING)
     Route: 065
  5. ATORVASTATIN CALCIUM [Concomitant]
     Active Substance: ATORVASTATIN CALCIUM
     Dosage: 20 MILLIGRAM, QD (1 TABLET DAILY)
     Route: 065
  6. BETAHISTINE [Concomitant]
     Active Substance: BETAHISTINE
     Dosage: 48 MILLIGRAM, QD
     Route: 065
  7. ASPIRIN [Concomitant]
     Active Substance: ASPIRIN
     Dosage: 100 MILLIGRAM, QD (1 TABLET DAILY)
     Route: 065
  8. CLOPIDOGREL BISULFATE [Concomitant]
     Active Substance: CLOPIDOGREL BISULFATE
     Dosage: 75 MILLIGRAM, QD (1 TABLET DAILY)
     Route: 065
  9. BETADINE [Concomitant]
     Active Substance: POVIDONE-IODINE
     Dosage: 48 MILLIGRAM, QD (1 TABLET DAILY)
     Route: 065

REACTIONS (29)
  - Pain [Recovering/Resolving]
  - Fatigue [Recovering/Resolving]
  - Genital abscess [Recovering/Resolving]
  - Peripheral vein occlusion [Recovering/Resolving]
  - Gastrointestinal disorder [Not Recovered/Not Resolved]
  - Pneumonia [Recovering/Resolving]
  - Malaise [Recovering/Resolving]
  - Pneumonitis [Recovering/Resolving]
  - Carotid artery occlusion [Recovering/Resolving]
  - Neoplasm [Unknown]
  - Localised infection [Not Recovered/Not Resolved]
  - Gastrooesophageal reflux disease [Recovering/Resolving]
  - Insomnia [Recovering/Resolving]
  - Dermatitis [Recovering/Resolving]
  - Skin lesion [Recovering/Resolving]
  - Anal incontinence [Not Recovered/Not Resolved]
  - Urinary incontinence [Recovering/Resolving]
  - Proctalgia [Not Recovered/Not Resolved]
  - Impaired quality of life [Recovering/Resolving]
  - Anorectal discomfort [Not Recovered/Not Resolved]
  - Eating disorder symptom [Recovering/Resolving]
  - Sensation of foreign body [Recovering/Resolving]
  - Dysphagia [Recovering/Resolving]
  - Peripheral swelling [Recovering/Resolving]
  - Housebound [Unknown]
  - Cough [Not Recovered/Not Resolved]
  - Abdominal pain [Recovering/Resolving]
  - Pruritus [Recovering/Resolving]
  - Off label use [Unknown]

NARRATIVE: CASE EVENT DATE: 20240101
